FAERS Safety Report 23532347 (Version 1)
Quarter: 2024Q1

REPORT INFORMATION
  Report Type: Spontaneous
  Country: US (occurrence: US)
  Receive Date: 20240216
  Receipt Date: 20240216
  Transmission Date: 20240410
  Serious: No
  Sender: FDA-Public Use
  Company Number: US-BRISTOL-MYERS SQUIBB COMPANY-2024-023501

PATIENT

DRUGS (1)
  1. ABATACEPT [Suspect]
     Active Substance: ABATACEPT
     Indication: Arthritis

REACTIONS (4)
  - Photosensitivity reaction [Unknown]
  - Mouth ulceration [Unknown]
  - Dry eye [Unknown]
  - Off label use [Unknown]
